FAERS Safety Report 6025822-5 (Version None)
Quarter: 2008Q4

REPORT INFORMATION
  Report Type: 
  Country: None (occurrence: None)
  Receive Date: 20081229
  Receipt Date: 20081222
  Transmission Date: 20090506
  Serious: Yes (Hospitalization)
  Sender: FDA-Public Use
  Company Number: POMP-1000437

PATIENT
  Age: 3 Year
  Sex: Male
  Weight: 17.2 kg

DRUGS (1)
  1. MYOZYME [Suspect]
     Indication: GLYCOGEN STORAGE DISEASE TYPE II
     Dosage: INTRAVENOUS
     Route: 042

REACTIONS (4)
  - FEEDING TUBE COMPLICATION [None]
  - HYPOGLYCAEMIA [None]
  - HYPOTHERMIA [None]
  - LETHARGY [None]
